FAERS Safety Report 4903103-8 (Version None)
Quarter: 2006Q1

REPORT INFORMATION
  Report Type: 
  Country: None (occurrence: None)
  Receive Date: 20060207
  Receipt Date: 20060110
  Transmission Date: 20060701
  Serious: Yes (Hospitalization)
  Sender: FDA-Public Use
  Company Number: FR-ROCHE-431484

PATIENT
  Age: 82 Year
  Sex: Female

DRUGS (10)
  1. LOXEN LP [Suspect]
     Indication: HYPERTENSION
     Route: 048
     Dates: end: 20040928
  2. KARDEGIC [Suspect]
     Indication: DRUG USE FOR UNKNOWN INDICATION
     Route: 048
     Dates: end: 20050223
  3. ELISOR [Suspect]
     Route: 048
  4. IRBESARTAN [Concomitant]
     Route: 048
     Dates: end: 20041019
  5. CYCLO 3 FORT [Concomitant]
     Route: 048
     Dates: start: 20031127, end: 20050223
  6. LANSOPRAZOLE [Concomitant]
     Dosage: DRUG ALSO TAKED FROM AN UNKNOWN DATE UNTIL 28-SEPT-2004.
     Route: 048
     Dates: start: 20040928, end: 20050223
  7. ALTIZIDE + SPIRONOLACTONE [Concomitant]
     Route: 048
     Dates: start: 20041105, end: 20051017
  8. PARACETAMOL [Concomitant]
     Dates: start: 20040928, end: 20041105
  9. DIPYRIDAMOLE [Concomitant]
     Route: 048
     Dates: start: 20041202
  10. ANASTROZOLE [Concomitant]
     Route: 048

REACTIONS (5)
  - ANAEMIA [None]
  - ECZEMA [None]
  - HYPERURICAEMIA [None]
  - RENAL FAILURE [None]
  - XEROSIS [None]
